FAERS Safety Report 23494072 (Version 1)
Quarter: 2024Q1

REPORT INFORMATION
  Report Type: Spontaneous
  Country: US (occurrence: None)
  Receive Date: 20240206
  Receipt Date: 20240206
  Transmission Date: 20240410
  Serious: Yes (Other)
  Sender: FDA-Public Use
  Company Number: None

PATIENT
  Sex: Female

DRUGS (29)
  1. XOLAIR [Suspect]
     Active Substance: OMALIZUMAB
     Indication: Asthma
     Dosage: OTHER FREQUENCY : EVERY 3 WEEKS;?
     Route: 058
     Dates: start: 20230517
  2. ALBUTEROL AER HFA [Concomitant]
  3. ALLEGRA ALRG [Concomitant]
  4. ALTAVERA [Concomitant]
     Active Substance: ETHINYL ESTRADIOL\LEVONORGESTREL
  5. AMITIZA [Concomitant]
     Active Substance: LUBIPROSTONE
  6. AZELASTINE SPR [Concomitant]
  7. BREZTRI AERO AER SPHERE [Concomitant]
  8. CELEXA [Concomitant]
     Active Substance: CITALOPRAM HYDROBROMIDE
  9. CITALOPRAM [Concomitant]
     Active Substance: CITALOPRAM HYDROBROMIDE
  10. DULCOLAX [Concomitant]
  11. EPINEPHRINE [Concomitant]
  12. FLONASE ALGRY SPR [Concomitant]
  13. HYOSCYAMINE [Concomitant]
     Active Substance: HYOSCYAMINE
  14. LEVOTHYROXINE [Concomitant]
     Active Substance: LEVOTHYROXINE\LEVOTHYROXINE SODIUM
  15. MAGNESIUM [Concomitant]
     Active Substance: MAGNESIUM
  16. MONTELUKAST [Concomitant]
     Active Substance: MONTELUKAST SODIUM
  17. MOTEGRITY [Concomitant]
     Active Substance: PRUCALOPRIDE SUCCINATE
  18. MULTI VITAMI [Concomitant]
  19. PANTOPRAZOLE [Concomitant]
  20. PEPCID [Concomitant]
     Active Substance: FAMOTIDINE
  21. PREDNISONE [Concomitant]
     Active Substance: PREDNISONE
  22. PROAIR AER [Concomitant]
  23. QVAR REDIHA AER [Concomitant]
  24. SCOPOLAMINE DIS [Concomitant]
  25. SOLU-MEDROL [Concomitant]
  26. SPIRIVA AER [Concomitant]
  27. SYMBICORT [Concomitant]
     Active Substance: BUDESONIDE\FORMOTEROL FUMARATE DIHYDRATE
  28. SYNTHROID [Concomitant]
     Active Substance: LEVOTHYROXINE SODIUM
  29. VITAMIN D [Concomitant]
     Active Substance: VITAMIN D NOS

REACTIONS (2)
  - Therapy interrupted [None]
  - Emergency care [None]
